FAERS Safety Report 14020106 (Version 1)
Quarter: 2017Q3

REPORT INFORMATION
  Report Type: Spontaneous
  Country: FR (occurrence: FR)
  Receive Date: 20170928
  Receipt Date: 20170928
  Transmission Date: 20171128
  Serious: Yes (Other)
  Sender: FDA-Public Use
  Company Number: FR-TAKEDA-2017TUS019987

PATIENT
  Age: 77 Year
  Sex: Female

DRUGS (1)
  1. ADENURIC [Suspect]
     Active Substance: FEBUXOSTAT
     Indication: HYPERURICAEMIA
     Dosage: 80 MG, QD
     Route: 048
     Dates: start: 20170818, end: 20170820

REACTIONS (3)
  - Skin burning sensation [Unknown]
  - Erythema [Unknown]
  - Dermatitis bullous [Unknown]

NARRATIVE: CASE EVENT DATE: 201708
